FAERS Safety Report 10897809 (Version 4)
Quarter: 2015Q2

REPORT INFORMATION
  Report Type: Spontaneous
  Country: US (occurrence: US)
  Receive Date: 20150309
  Receipt Date: 20150629
  Transmission Date: 20150821
  Serious: Yes (Hospitalization, Disabling, Other)
  Sender: FDA-Public Use
  Company Number: US-MERCK-1503USA004045

PATIENT
  Sex: Female
  Weight: 89.8 kg

DRUGS (1)
  1. JANUVIA [Suspect]
     Active Substance: SITAGLIPTIN PHOSPHATE
     Indication: TYPE 2 DIABETES MELLITUS
     Dosage: 25 MG, QD
     Route: 048
     Dates: start: 20081114, end: 201011

REACTIONS (5)
  - Chronic kidney disease [Not Recovered/Not Resolved]
  - Thyroidectomy [Unknown]
  - Papillary thyroid cancer [Recovered/Resolved]
  - Goitre [Unknown]
  - Adverse event [Not Recovered/Not Resolved]

NARRATIVE: CASE EVENT DATE: 20121029
